FAERS Safety Report 10263007 (Version 2)
Quarter: 2014Q2

REPORT INFORMATION
  Report Type: Report from Study
  Country: US (occurrence: US)
  Receive Date: 20140626
  Receipt Date: 20140626
  Transmission Date: 20141212
  Serious: Yes (Death)
  Sender: FDA-Public Use
  Company Number: US-MYLANLABS-2013S1025865

PATIENT
  Age: 59 Year
  Sex: Male

DRUGS (7)
  1. CLOZAPINE TABLETS [Suspect]
     Dates: start: 1999, end: 2013
  2. FLOVENT [Concomitant]
  3. LEVOTHYROXINE [Concomitant]
  4. LORAZEPAM [Concomitant]
  5. PANTOPRAZOL [Concomitant]
  6. PRO-AIR [Concomitant]
  7. FLOMAX /01280302/ [Concomitant]

REACTIONS (1)
  - Death [Fatal]
